FAERS Safety Report 19063728 (Version 12)
Quarter: 2025Q1

REPORT INFORMATION
  Report Type: Report from Study
  Country: US (occurrence: US)
  Receive Date: 20210326
  Receipt Date: 20250131
  Transmission Date: 20250409
  Serious: Yes (Hospitalization)
  Sender: TAKEDA
  Company Number: US-SHIRE-US201918864

PATIENT
  Age: 62 Year
  Sex: Male
  Weight: 64 kg

DRUGS (39)
  1. TEDUGLUTIDE [Suspect]
     Active Substance: TEDUGLUTIDE
     Indication: Short-bowel syndrome
     Dosage: 0.32 MILLILITER, QD
     Dates: start: 201905
  2. TEDUGLUTIDE [Suspect]
     Active Substance: TEDUGLUTIDE
     Indication: Colitis ulcerative
     Dosage: 0.32 MILLILITER, QD
  3. TEDUGLUTIDE [Suspect]
     Active Substance: TEDUGLUTIDE
     Dosage: 0.35 MILLILITER, QD
     Dates: start: 20190501
  4. TEDUGLUTIDE [Suspect]
     Active Substance: TEDUGLUTIDE
  5. TEDUGLUTIDE [Suspect]
     Active Substance: TEDUGLUTIDE
     Dosage: 0.32 MILLILITER, QD
  6. TEDUGLUTIDE [Suspect]
     Active Substance: TEDUGLUTIDE
     Dosage: 0.35 MILLILITER, QD
     Dates: start: 20190528
  7. TEDUGLUTIDE [Suspect]
     Active Substance: TEDUGLUTIDE
     Dosage: 0.32 MILLILITER, QD
  8. TEDUGLUTIDE [Suspect]
     Active Substance: TEDUGLUTIDE
     Dosage: 0.32 MILLILITER, QD
  9. TEDUGLUTIDE [Suspect]
     Active Substance: TEDUGLUTIDE
     Dosage: 0.32 MILLILITER, QD
  10. TEDUGLUTIDE [Suspect]
     Active Substance: TEDUGLUTIDE
     Dosage: 0.32 MILLILITER, QD
  11. VALIUM [Concomitant]
     Active Substance: DIAZEPAM
  12. LEVSIN [Concomitant]
     Active Substance: HYOSCYAMINE SULFATE
  13. ZOFRAN [Concomitant]
     Active Substance: ONDANSETRON HYDROCHLORIDE
  14. CYANOCOBALAMIN [Concomitant]
     Active Substance: CYANOCOBALAMIN
  15. VITAMIN D3 [Concomitant]
     Active Substance: CHOLECALCIFEROL
  16. XARELTO [Concomitant]
     Active Substance: RIVAROXABAN
  17. XARELTO [Concomitant]
     Active Substance: RIVAROXABAN
  18. LOMOTIL [Concomitant]
     Active Substance: ATROPINE SULFATE\DIPHENOXYLATE HYDROCHLORIDE
  19. IRON [Concomitant]
     Active Substance: IRON
  20. TYLENOL [Concomitant]
     Active Substance: ACETAMINOPHEN
  21. WELLBUTRIN SR [Concomitant]
     Active Substance: BUPROPION HYDROCHLORIDE
  22. CYANOCOBALAMIN\FOLIC ACID [Concomitant]
     Active Substance: CYANOCOBALAMIN\FOLIC ACID
  23. THIAMINE HYDROCHLORIDE [Concomitant]
     Active Substance: THIAMINE HYDROCHLORIDE
  24. PROMETHAZINE [Concomitant]
     Active Substance: PROMETHAZINE HYDROCHLORIDE
  25. VITAMIN D [Concomitant]
     Active Substance: VITAMIN D NOS
  26. SANDOSTATIN LAR DEPOT [Concomitant]
     Active Substance: OCTREOTIDE ACETATE
  27. SANDOSTATIN LAR DEPOT [Concomitant]
     Active Substance: OCTREOTIDE ACETATE
  28. TYLENOL PM, EXTRA STRENGTH [Concomitant]
  29. VITAMIN B12 [Concomitant]
     Active Substance: CYANOCOBALAMIN
  30. SILDENAFIL CITRATE [Concomitant]
     Active Substance: SILDENAFIL CITRATE
  31. ONDANSETRON HYDROCHLORIDE [Concomitant]
     Active Substance: ONDANSETRON HYDROCHLORIDE
  32. ATROPINE\DIPHENOXYLATE [Concomitant]
     Active Substance: ATROPINE\DIPHENOXYLATE
  33. BUPROPION HYDROCHLORIDE [Concomitant]
     Active Substance: BUPROPION HYDROCHLORIDE
  34. BACLOFEN [Concomitant]
     Active Substance: BACLOFEN
  35. DIAZEPAM [Concomitant]
     Active Substance: DIAZEPAM
  36. OMEPRAZOLE [Concomitant]
     Active Substance: OMEPRAZOLE
  37. MIDODRINE HYDROCHLORIDE [Concomitant]
     Active Substance: MIDODRINE HYDROCHLORIDE
  38. PROLIA [Concomitant]
     Active Substance: DENOSUMAB
  39. ATORVASTATIN CALCIUM [Concomitant]
     Active Substance: ATORVASTATIN CALCIUM

REACTIONS (17)
  - Weight decreased [Recovering/Resolving]
  - Diarrhoea [Unknown]
  - Nausea [Unknown]
  - Weight increased [Unknown]
  - Pharyngitis streptococcal [Unknown]
  - Blood cholesterol abnormal [Unknown]
  - Neck pain [Unknown]
  - Product quality issue [Unknown]
  - Product use issue [Unknown]
  - Off label use [Recovered/Resolved]
  - Product availability issue [Unknown]
  - Inappropriate schedule of product administration [Unknown]
  - Short stature [Unknown]
  - Eating disorder [Recovering/Resolving]
  - COVID-19 [Unknown]
  - Weight gain poor [Unknown]
  - Headache [Unknown]

NARRATIVE: CASE EVENT DATE: 20190528
